FAERS Safety Report 24240129 (Version 2)
Quarter: 2024Q3

REPORT INFORMATION
  Report Type: Spontaneous
  Country: US (occurrence: US)
  Receive Date: 20240822
  Receipt Date: 20240829
  Transmission Date: 20241017
  Serious: No
  Sender: ELI LILLY AND CO
  Company Number: US-ELI_LILLY_AND_COMPANY-US202408012039

PATIENT
  Age: 28 Year
  Sex: Female

DRUGS (8)
  1. ZEPBOUND [Suspect]
     Active Substance: TIRZEPATIDE
     Indication: Weight control
     Dosage: 2.5 MG, UNKNOWN
     Route: 058
     Dates: start: 202405
  2. ZEPBOUND [Suspect]
     Active Substance: TIRZEPATIDE
     Indication: Weight control
     Dosage: 2.5 MG, UNKNOWN
     Route: 058
     Dates: start: 202405
  3. ZEPBOUND [Suspect]
     Active Substance: TIRZEPATIDE
     Indication: Weight control
     Dosage: 2.5 MG, UNKNOWN
     Route: 058
     Dates: start: 202405
  4. ZEPBOUND [Suspect]
     Active Substance: TIRZEPATIDE
     Indication: Weight control
     Dosage: 2.5 MG, UNKNOWN
     Route: 058
     Dates: start: 202405
  5. ZEPBOUND [Suspect]
     Active Substance: TIRZEPATIDE
     Indication: Weight control
     Dosage: 5 MG, UNKNOWN
     Route: 058
  6. ZEPBOUND [Suspect]
     Active Substance: TIRZEPATIDE
     Indication: Weight control
     Dosage: 5 MG, UNKNOWN
     Route: 058
  7. ZEPBOUND [Suspect]
     Active Substance: TIRZEPATIDE
     Indication: Weight control
     Dosage: 5 MG, UNKNOWN
     Route: 058
  8. ZEPBOUND [Suspect]
     Active Substance: TIRZEPATIDE
     Indication: Weight control
     Dosage: 5 MG, UNKNOWN
     Route: 058

REACTIONS (1)
  - Injection site discomfort [Unknown]
